FAERS Safety Report 8671619 (Version 4)
Quarter: 2012Q4

REPORT INFORMATION
  Report Type: Report from Study
  Country: IT (occurrence: IT)
  Receive Date: 20120718
  Receipt Date: 20121210
  Transmission Date: 20130627
  Serious: Yes (Hospitalization)
  Sender: FDA-Public Use
  Company Number: IT-JNJFOC-20120707035

PATIENT
  Sex: Female
  Weight: 51 kg

DRUGS (2)
  1. REMICADE [Suspect]
     Indication: COLITIS ULCERATIVE
     Dosage: dose: 255 mg
     Route: 042
     Dates: start: 200807
  2. REMICADE [Suspect]
     Indication: COLITIS ULCERATIVE
     Dosage: stopped after second infusion due to an infusion related reaction
     Route: 042
     Dates: end: 200807

REACTIONS (5)
  - Ileostomy closure [Recovered/Resolved]
  - Pyrexia [Recovered/Resolved]
  - Abdominal pain [Recovered/Resolved]
  - Vomiting [Recovered/Resolved]
  - Diarrhoea [Recovered/Resolved]
